FAERS Safety Report 20987217 (Version 1)
Quarter: 2022Q2

REPORT INFORMATION
  Report Type: Spontaneous
  Country: NL (occurrence: None)
  Receive Date: 20220621
  Receipt Date: 20220621
  Transmission Date: 20220720
  Serious: Yes (Hospitalization)
  Sender: FDA-Public Use
  Company Number: 2022A222961

PATIENT
  Age: 69 Year
  Sex: Male

DRUGS (4)
  1. QUETIAPINE [Suspect]
     Active Substance: QUETIAPINE
     Indication: Hallucination
     Dosage: 1DD 1 PIECE
     Route: 048
     Dates: start: 20220420, end: 20220524
  2. QUETIAPINE [Suspect]
     Active Substance: QUETIAPINE
     Indication: Delusion
     Dosage: 1DD 1 PIECE
     Route: 048
     Dates: start: 20220420, end: 20220524
  3. CARBIDOPA\LEVODOPA [Concomitant]
     Active Substance: CARBIDOPA\LEVODOPA
     Dosage: 125 MG, 2 - 1.5 - 1.5 - 1.5 - 1.5 -1.5 - 1.5 - 0.5 TABL (INTERVAL 2.5 HOURS)
     Route: 048
  4. ENTACAPONE [Concomitant]
     Active Substance: ENTACAPONE
     Dosage: FILM-COATED TABLET, 200 MG (MILLIGRAMS)
     Route: 048

REACTIONS (2)
  - Renal failure [Unknown]
  - Urinary retention [Recovering/Resolving]

NARRATIVE: CASE EVENT DATE: 20220524
